FAERS Safety Report 8980426 (Version 2)
Quarter: 2013Q2

REPORT INFORMATION
  Report Type: Spontaneous
  Country: US (occurrence: US)
  Receive Date: 20121221
  Receipt Date: 20130503
  Transmission Date: 20140414
  Serious: Yes (Hospitalization)
  Sender: FDA-Public Use
  Company Number: PHHY2012US117136

PATIENT
  Age: 58 Year
  Sex: Male

DRUGS (5)
  1. RIBAVIRIN [Suspect]
     Indication: HEPATITIS C
     Dosage: 1200 MG DAILY
     Route: 048
  2. PEGINTERFERON ALFA-2B [Suspect]
     Indication: HEPATITIS C
     Dosage: 150 UG PER WEEK
     Route: 058
  3. VITAMIN D [Concomitant]
     Dosage: 2000 IU, UNK
  4. ACETAMINOPHEN [Concomitant]
     Indication: PAIN
  5. SILDENAFIL [Concomitant]
     Indication: ERECTILE DYSFUNCTION

REACTIONS (14)
  - Catatonia [Recovering/Resolving]
  - Waxy flexibility [Recovering/Resolving]
  - Musculoskeletal stiffness [Recovering/Resolving]
  - Stupor [Recovering/Resolving]
  - Mutism [Recovering/Resolving]
  - Restlessness [Recovered/Resolved]
  - Agitation [Recovered/Resolved]
  - Irritability [Recovered/Resolved]
  - Hypophagia [Recovering/Resolving]
  - Anxiety [Recovering/Resolving]
  - Tremor [Recovering/Resolving]
  - Feeling abnormal [Recovering/Resolving]
  - Liver function test abnormal [Recovering/Resolving]
  - Pancytopenia [Unknown]
